FAERS Safety Report 4698241-1 (Version None)
Quarter: 2005Q2

REPORT INFORMATION
  Report Type: 
  Country: None (occurrence: None)
  Receive Date: 20050621
  Receipt Date: 20050602
  Transmission Date: 20051028
  Serious: Yes (Hospitalization)
  Sender: FDA-Public Use
  Company Number: USA050699856

PATIENT
  Age: 76 Year
  Sex: Male

DRUGS (1)
  1. CYMBALTA [Suspect]
     Indication: DIABETIC NEUROPATHY
     Dosage: 60 MG
     Dates: end: 20050602

REACTIONS (1)
  - HYPONATRAEMIA [None]
